FAERS Safety Report 5199487-9 (Version None)
Quarter: 2006Q4

REPORT INFORMATION
  Report Type: 
  Country: None (occurrence: None)
  Receive Date: 20061229
  Receipt Date: 20061214
  Transmission Date: 20070319
  Serious: Yes (Hospitalization)
  Sender: FDA-Public Use
  Company Number: 100#03#2006-01236

PATIENT
  Age: 22 Year
  Sex: Male

DRUGS (7)
  1. PRAVASTATIN SODIUM [Suspect]
     Indication: RHABDOMYOLYSIS
     Dosage: 40 MG ORAL
     Route: 048
  2. CYCLOSPORINE [Suspect]
     Indication: IMMUNOSUPPRESSION
  3. ACETYLSALICYLIC ACID (ACETYLSALICYLIC ACID) (ACETYLSALICYLIC ACID) [Concomitant]
  4. AZATHIORPINE (AZATHIOPRINE) (AZATHIOPRINE) [Concomitant]
  5. FUROSEMIDE (FUROSEMIDE) (FUROSEMIDE) [Concomitant]
  6. PREDNISOLONE [Concomitant]
  7. RAMIPRIL (RAMIPRIL) (RAMIPRIL) [Concomitant]

REACTIONS (6)
  - DRUG INTERACTION [None]
  - FIBRIN D DIMER INCREASED [None]
  - OEDEMA PERIPHERAL [None]
  - PAIN IN EXTREMITY [None]
  - PITTING OEDEMA [None]
  - RHABDOMYOLYSIS [None]
